FAERS Safety Report 20557417 (Version 1)
Quarter: 2022Q1

REPORT INFORMATION
  Report Type: Spontaneous
  Country: US (occurrence: US)
  Receive Date: 20220307
  Receipt Date: 20220307
  Transmission Date: 20220423
  Serious: No
  Sender: FDA-Public Use
  Company Number: US-drreddys-SPO/USA/22/0146904

PATIENT
  Age: 18 Year
  Sex: Female
  Weight: 45 kg

DRUGS (3)
  1. ZENATANE [Suspect]
     Active Substance: ISOTRETINOIN
     Indication: Acne
     Dates: start: 20211123
  2. ZENATANE [Suspect]
     Active Substance: ISOTRETINOIN
     Dates: start: 20220207, end: 20220208
  3. BENADRYL [Concomitant]
     Active Substance: DIPHENHYDRAMINE HYDROCHLORIDE
     Indication: Product used for unknown indication

REACTIONS (7)
  - Abnormal sensation in eye [Unknown]
  - Eye pain [Unknown]
  - Eye swelling [Unknown]
  - Pruritus [Unknown]
  - Dry skin [Unknown]
  - Incorrect dose administered [Unknown]
  - Product dose omission issue [Unknown]

NARRATIVE: CASE EVENT DATE: 20220207
